FAERS Safety Report 10552800 (Version 2)
Quarter: 2014Q4

REPORT INFORMATION
  Report Type: Spontaneous
  Country: US (occurrence: US)
  Receive Date: 20141029
  Receipt Date: 20141029
  Transmission Date: 20150529
  Serious: No
  Sender: FDA-Public Use
  Company Number: US-MYLANLABS-2013S1023487

PATIENT
  Age: 42 Year
  Sex: Female

DRUGS (1)
  1. RISPERIDONE. [Suspect]
     Active Substance: RISPERIDONE
     Dosage: 2 MG,QD
     Dates: start: 20131001, end: 20131031

REACTIONS (3)
  - Unevaluable event [Not Recovered/Not Resolved]
  - Nausea [Recovered/Resolved]
  - Somnolence [Recovered/Resolved]

NARRATIVE: CASE EVENT DATE: 20131001
